FAERS Safety Report 10255690 (Version 2)
Quarter: 2014Q3

REPORT INFORMATION
  Report Type: Report from Study
  Country: CA (occurrence: CA)
  Receive Date: 20140624
  Receipt Date: 20140711
  Transmission Date: 20150326
  Serious: Yes (Death, Hospitalization)
  Sender: FDA-Public Use
  Company Number: PHHY2014CA077439

PATIENT
  Age: 62 Year
  Sex: Female

DRUGS (1)
  1. SANDOSTATIN LAR DEPOT [Suspect]
     Active Substance: OCTREOTIDE ACETATE
     Indication: PANCREATIC CARCINOMA
     Dosage: 30 MG, QMO
     Route: 030
     Dates: start: 20140502, end: 20140602

REACTIONS (3)
  - Death [Fatal]
  - Eating disorder [Unknown]
  - Malaise [Unknown]

NARRATIVE: CASE EVENT DATE: 20140621
